FAERS Safety Report 5324512-1 (Version None)
Quarter: 2007Q2

REPORT INFORMATION
  Report Type: 
  Country: None (occurrence: None)
  Receive Date: 20070514
  Receipt Date: 20070502
  Transmission Date: 20071010
  Serious: Yes (Other)
  Sender: FDA-Public Use
  Company Number: JP-PFIZER INC-2007023113

PATIENT
  Sex: Male
  Weight: 80 kg

DRUGS (7)
  1. SULPERAZON [Suspect]
     Indication: POST PROCEDURAL INFECTION
     Dosage: DAILY DOSE:2GRAM
     Route: 042
  2. SULPERAZON [Suspect]
     Indication: PROPHYLAXIS
     Dosage: DAILY DOSE:2GRAM
     Route: 042
     Dates: start: 20070109, end: 20070111
  3. SULPERAZON [Suspect]
     Indication: PYREXIA
  4. SOLDACTONE [Suspect]
     Indication: URINARY RETENTION
     Dosage: DAILY DOSE:200MG
     Route: 042
  5. SOLDACTONE [Suspect]
  6. LASIX [Concomitant]
  7. ANTIBIOTICS [Concomitant]

REACTIONS (4)
  - HAEMATURIA [None]
  - LIVER DISORDER [None]
  - RENAL FAILURE ACUTE [None]
  - STEVENS-JOHNSON SYNDROME [None]
